FAERS Safety Report 24652966 (Version 2)
Quarter: 2025Q1

REPORT INFORMATION
  Report Type: Spontaneous
  Country: US (occurrence: US)
  Receive Date: 20241122
  Receipt Date: 20250228
  Transmission Date: 20250409
  Serious: Yes (Hospitalization)
  Sender: TAKEDA
  Company Number: US-TAKEDA-2024TUS117522

PATIENT
  Sex: Male
  Weight: 81 kg

DRUGS (2)
  1. LIVTENCITY [Suspect]
     Active Substance: MARIBAVIR
     Indication: Cytomegalovirus infection
     Dosage: 400 MILLIGRAM, BID
     Dates: start: 20241101
  2. LIVTENCITY [Suspect]
     Active Substance: MARIBAVIR

REACTIONS (4)
  - Fluid retention [Unknown]
  - Viral infection [Unknown]
  - Diarrhoea [Unknown]
  - Vomiting [Unknown]
